FAERS Safety Report 12467135 (Version 3)
Quarter: 2021Q1

REPORT INFORMATION
  Report Type: Spontaneous
  Country: US (occurrence: US)
  Receive Date: 20160615
  Receipt Date: 20210127
  Transmission Date: 20210419
  Serious: Yes (Life-Threatening, Hospitalization, Other)
  Sender: FDA-Public Use
  Company Number: US-AUROBINDO-AUR-APL-2016-07851

PATIENT
  Age: 28 Year
  Sex: Female

DRUGS (18)
  1. CIMETIDINE [Interacting]
     Active Substance: CIMETIDINE
     Dosage: 10 DOSAGE FORM
     Route: 048
  2. CIMETIDINE [Interacting]
     Active Substance: CIMETIDINE
     Dosage: 10 DOSAGE FORM
     Route: 048
  3. LOPERAMIDE [Interacting]
     Active Substance: LOPERAMIDE
     Dosage: 100 DOSAGE FORM
     Route: 048
  4. LOPERAMIDE [Interacting]
     Active Substance: LOPERAMIDE
     Dosage: 100 DOSAGE FORM
     Route: 048
  5. LOPERAMIDE [Interacting]
     Active Substance: LOPERAMIDE
     Dosage: 400?600 MG
     Route: 065
  6. GABAPENTIN. [Concomitant]
     Active Substance: GABAPENTIN
     Indication: DRUG WITHDRAWAL SYNDROME
     Dosage: UNK
     Route: 065
  7. LOPERAMIDE [Suspect]
     Active Substance: LOPERAMIDE
     Indication: DRUG WITHDRAWAL SYNDROME
     Dosage: UNK, 400?600 MG
     Route: 048
  8. CIMETIDINE [Interacting]
     Active Substance: CIMETIDINE
     Dosage: 10 DOSAGE FORM
     Route: 048
  9. CIMETIDINE [Interacting]
     Active Substance: CIMETIDINE
     Dosage: 2000 MILLIGRAM, IN THE FORM OF 200 MG TABLETS
     Route: 048
  10. CIMETIDINE [Interacting]
     Active Substance: CIMETIDINE
     Dosage: 2000 MILLIGRAM, IN THE FORM OF 200 MG TABLETS
     Route: 048
  11. LOPERAMIDE [Interacting]
     Active Substance: LOPERAMIDE
     Dosage: 100 DOSAGE FORM
     Route: 048
  12. LOPERAMIDE [Interacting]
     Active Substance: LOPERAMIDE
     Dosage: 400?600 MG
     Route: 048
  13. CIMETIDINE [Interacting]
     Active Substance: CIMETIDINE
     Dosage: 2000 MILLIGRAM,IN THE FORM OF 200 MG TABLETS
     Route: 048
  14. LOPERAMIDE [Interacting]
     Active Substance: LOPERAMIDE
     Dosage: 400?600 MG
     Route: 048
  15. LOPERAMIDE [Interacting]
     Active Substance: LOPERAMIDE
     Dosage: 100 DOSAGE FORM
     Route: 048
  16. CIMETIDINE [Interacting]
     Active Substance: CIMETIDINE
     Indication: DRUG WITHDRAWAL SYNDROME
     Dosage: 2000 MG, IN THE FORM OF 200 MG TABLETS
     Route: 048
  17. MORPHINE [Concomitant]
     Active Substance: MORPHINE
     Indication: PRODUCT USED FOR UNKNOWN INDICATION
     Dosage: UNK
     Route: 065
  18. CIMETIDINE [Interacting]
     Active Substance: CIMETIDINE
     Dosage: 10 DOSAGE FORM
     Route: 048

REACTIONS (17)
  - Drug interaction [Recovered/Resolved]
  - Self-medication [Recovered/Resolved]
  - Electrocardiogram T wave inversion [Recovered/Resolved]
  - QRS axis abnormal [Recovered/Resolved]
  - Toxicity to various agents [Recovered/Resolved]
  - Electrocardiogram QRS complex prolonged [Recovered/Resolved]
  - Electrocardiogram T wave amplitude decreased [Recovered/Resolved]
  - Torsade de pointes [Recovered/Resolved]
  - Drug abuse [Recovered/Resolved]
  - Arrhythmia [Recovered/Resolved]
  - Cardiac murmur [Recovered/Resolved]
  - Syncope [Recovered/Resolved]
  - Electrocardiogram QT prolonged [Recovered/Resolved]
  - Myoclonus [Recovered/Resolved]
  - Overdose [Recovered/Resolved]
  - Atrioventricular block first degree [Recovered/Resolved]
  - Sinus bradycardia [Recovered/Resolved]
